FAERS Safety Report 23959767 (Version 2)
Quarter: 2024Q3

REPORT INFORMATION
  Report Type: Report from Study
  Country: US (occurrence: US)
  Receive Date: 20240611
  Receipt Date: 20240703
  Transmission Date: 20241016
  Serious: Yes (Other)
  Sender: TAKEDA
  Company Number: US-TAKEDA-2024TUS017735

PATIENT
  Sex: Female

DRUGS (1)
  1. LANADELUMAB [Suspect]
     Active Substance: LANADELUMAB
     Indication: Immune system disorder
     Dosage: 300 MILLIGRAM, Q2WEEKS
     Route: 058
     Dates: start: 202402

REACTIONS (6)
  - Breast cancer [Unknown]
  - Weight decreased [Unknown]
  - Fall [Unknown]
  - Joint injury [Unknown]
  - Peripheral swelling [Unknown]
  - Hereditary angioedema [Unknown]
